FAERS Safety Report 22306717 (Version 1)
Quarter: 2023Q2

REPORT INFORMATION
  Report Type: Spontaneous
  Country: CN (occurrence: CN)
  Receive Date: 20230511
  Receipt Date: 20230511
  Transmission Date: 20230722
  Serious: Yes (Hospitalization, Other)
  Sender: FDA-Public Use
  Company Number: None

PATIENT
  Age: 8 Year
  Sex: Female
  Weight: 22 kg

DRUGS (5)
  1. CYCLOPHOSPHAMIDE [Suspect]
     Active Substance: CYCLOPHOSPHAMIDE
     Indication: Acute lymphocytic leukaemia
     Dosage: 0.863 G, QD (DILUTED WITH 0.9% SODIUM CHLORIDE 250ML)
     Route: 041
     Dates: start: 20230411, end: 20230411
  2. SODIUM CHLORIDE [Suspect]
     Active Substance: SODIUM CHLORIDE
     Indication: Medication dilution
     Dosage: 250 ML, QD, STRENGTH: 0.9%, DOSAGE FORM: INJECTION (USED TO DILUTE CYCLOPHOSPHAMIDE 0.863 G)
     Route: 041
     Dates: start: 20230411, end: 20230411
  3. SODIUM CHLORIDE [Suspect]
     Active Substance: SODIUM CHLORIDE
     Dosage: 250 ML, Q12H, STRENGTH: 0.9%, DOSAGE FORM: INJECTION (USED TO DILUTE CYTARABINE 0.863 G)
     Route: 041
     Dates: start: 20230411, end: 20230414
  4. MERCAPTOPURINE [Suspect]
     Active Substance: MERCAPTOPURINE
     Indication: Acute lymphocytic leukaemia
     Dosage: 43 MG, QD
     Route: 048
     Dates: start: 20230411, end: 20230413
  5. CYTARABINE [Suspect]
     Active Substance: CYTARABINE
     Indication: Acute lymphocytic leukaemia
     Dosage: 0.863 G, Q12H (DILUTED WITH 0.9% SODIUM CHLORIDE 250 ML)
     Route: 041
     Dates: start: 20230411, end: 20230414

REACTIONS (1)
  - Myelosuppression [Recovering/Resolving]

NARRATIVE: CASE EVENT DATE: 20230418
